FAERS Safety Report 11119570 (Version 1)
Quarter: 2015Q2

REPORT INFORMATION
  Report Type: Spontaneous
  Country: US (occurrence: None)
  Receive Date: 20150515
  Receipt Date: 20150515
  Transmission Date: 20150821
  Serious: Yes (Disabling)
  Sender: FDA-Public Use
  Company Number: None

PATIENT
  Age: 68 Year
  Sex: Female
  Weight: 77.11 kg

DRUGS (5)
  1. LEVOFLOXACIN. [Suspect]
     Active Substance: LEVOFLOXACIN
     Indication: SINUSITIS
     Dosage: 1 PILL DAILY BY MOUTH
     Route: 048
     Dates: start: 20140115, end: 20140118
  2. REMICADE [Concomitant]
     Active Substance: INFLIXIMAB
  3. SINGULAIR [Concomitant]
     Active Substance: MONTELUKAST SODIUM
  4. METHOTREXATE [Concomitant]
     Active Substance: METHOTREXATE
  5. SYMBICORT [Concomitant]
     Active Substance: BUDESONIDE\FORMOTEROL FUMARATE DIHYDRATE

REACTIONS (18)
  - Pain [None]
  - Memory impairment [None]
  - Abdominal discomfort [None]
  - Dyspnoea [None]
  - Disturbance in attention [None]
  - Multiple chemical sensitivity [None]
  - Pyrexia [None]
  - Respiratory disorder [None]
  - Myalgia [None]
  - Tendonitis [None]
  - Tinnitus [None]
  - Vision blurred [None]
  - Anxiety [None]
  - Paranoia [None]
  - Headache [None]
  - Impaired work ability [None]
  - Insomnia [None]
  - Palpitations [None]

NARRATIVE: CASE EVENT DATE: 20140117
